FAERS Safety Report 8767839 (Version 1)
Quarter: 2012Q4

REPORT INFORMATION
  Report Type: 
  Country: FR (occurrence: FR)
  Receive Date: 20120905
  Receipt Date: 20120905
  Transmission Date: 20130627
  Serious: Yes (Hospitalization, Other)
  Sender: FDA-Public Use
  Company Number: PHHY2012FR076086

PATIENT
  Age: 86 Year
  Sex: Female

DRUGS (1)
  1. AMIODARONE [Suspect]
     Indication: CARDIAC FAILURE
     Dosage: 300 mg, UNK

REACTIONS (8)
  - Multi-organ failure [Recovering/Resolving]
  - Renal failure [Recovering/Resolving]
  - Hepatic failure [Recovering/Resolving]
  - Cardiac failure [Recovering/Resolving]
  - Hyperthyroidism [Recovering/Resolving]
  - Tachyarrhythmia [Recovering/Resolving]
  - Cachexia [Recovering/Resolving]
  - General physical health deterioration [Recovering/Resolving]
